FAERS Safety Report 4576362-1 (Version None)
Quarter: 2005Q1

REPORT INFORMATION
  Report Type: 
  Country: None (occurrence: None)
  Receive Date: 20050207
  Receipt Date: 20050125
  Transmission Date: 20050727
  Serious: Yes (Hospitalization)
  Sender: FDA-Public Use
  Company Number: ENT 2005-0011

PATIENT
  Age: 76 Year
  Sex: Male

DRUGS (3)
  1. COMTESS (ENTACAPONE) [Suspect]
     Indication: PARKINSON'S DISEASE
     Dosage: 600 MG (200 MG, 3 IN 1 D), ORAL
     Route: 048
     Dates: start: 20041112, end: 20050125
  2. AMANDATIN [Concomitant]
  3. MADOPAR [Concomitant]

REACTIONS (2)
  - ISCHAEMIC STROKE [None]
  - TREATMENT NONCOMPLIANCE [None]
